FAERS Safety Report 15052876 (Version 2)
Quarter: 2018Q2

REPORT INFORMATION
  Report Type: Spontaneous
  Country: JP (occurrence: JP)
  Receive Date: 20180622
  Receipt Date: 20180628
  Transmission Date: 20180711
  Serious: Yes (Other)
  Sender: FDA-Public Use
  Company Number: JP-GLAXOSMITHKLINE-JP2018JPN109659

PATIENT
  Age: 61 Year
  Sex: Male

DRUGS (2)
  1. ZALUTIA [Concomitant]
     Active Substance: TADALAFIL
     Indication: BENIGN PROSTATIC HYPERPLASIA
     Dosage: 5 MG, UNK
  2. AVOLVE [Suspect]
     Active Substance: DUTASTERIDE
     Indication: BENIGN PROSTATIC HYPERPLASIA
     Dosage: 0.5 MG, PRN
     Route: 048

REACTIONS (4)
  - Product use issue [Unknown]
  - Benign prostatic hyperplasia [Unknown]
  - Disease progression [Unknown]
  - Urinary retention [Recovered/Resolved]
